FAERS Safety Report 4398833-3 (Version None)
Quarter: 2004Q2

REPORT INFORMATION
  Report Type: 
  Country: None (occurrence: None)
  Receive Date: 20040621
  Receipt Date: 20040213
  Transmission Date: 20050107
  Serious: Yes (Death)
  Sender: FDA-Public Use
  Company Number: USA-2003-0007338

PATIENT
  Age: 55 Year
  Sex: Male
  Weight: 90.2 kg

DRUGS (7)
  1. OXYCODONE HCL [Suspect]
  2. HYDROCODONE BITARTRATE [Suspect]
  3. COCANE (COCAINE) [Suspect]
  4. MESCALINE (MESCALINE) [Suspect]
  5. ETHANOL (ETHANOL) [Suspect]
  6. LIDOCAINE [Suspect]
  7. NICOTINE [Suspect]

REACTIONS (1)
  - ACCIDENTAL OVERDOSE [None]
